FAERS Safety Report 10183302 (Version 2)
Quarter: 2014Q2

REPORT INFORMATION
  Report Type: Spontaneous
  Country: JP (occurrence: None)
  Receive Date: 20140516
  Receipt Date: 20140523
  Transmission Date: 20141212
  Serious: Yes (Hospitalization)
  Sender: FDA-Public Use
  Company Number: VAL_03120_2014

PATIENT
  Age: 85 Year
  Sex: Male

DRUGS (5)
  1. PARLODEL [Suspect]
     Indication: PARKINSON^S DISEASE
     Route: 048
  2. ANTIHYPERTENSIVES (UNKNOWN) [Concomitant]
  3. BAYASPIRIN [Concomitant]
  4. MICARDIS [Concomitant]
  5. AMLODIPINE [Concomitant]

REACTIONS (3)
  - Atrial fibrillation [None]
  - Blood pressure decreased [None]
  - Femur fracture [None]
